FAERS Safety Report 20826167 (Version 1)
Quarter: 2022Q2

REPORT INFORMATION
  Report Type: Spontaneous
  Country: DE (occurrence: DE)
  Receive Date: 20220513
  Receipt Date: 20220513
  Transmission Date: 20220721
  Serious: Yes (Other)
  Sender: FDA-Public Use
  Company Number: DE-ROCHE-3081968

PATIENT
  Age: 89 Year
  Sex: Male
  Weight: 72 kg

DRUGS (9)
  1. RITUXIMAB [Suspect]
     Active Substance: RITUXIMAB
     Dosage: UNK, CYCLIC (1ST LINE, R-CHOP, 6 CYCLES)
     Route: 065
     Dates: start: 201809, end: 201903
  2. RITUXIMAB [Suspect]
     Active Substance: RITUXIMAB
     Dosage: UNK, CYCLIC (1ST LINE, MONOTHERAPY, 2 CYCLES, STANDARD DOSAGE)
     Route: 065
     Dates: start: 201809, end: 201903
  3. RITUXIMAB [Suspect]
     Active Substance: RITUXIMAB
     Dosage: UNK, CYCLIC (R-GEMOX, 1 CYCLE, STANDARD DOSAGE)
     Route: 065
     Dates: start: 201908
  4. CYCLOPHOSPHAMIDE [Suspect]
     Active Substance: CYCLOPHOSPHAMIDE
     Indication: Diffuse large B-cell lymphoma
     Dosage: UNK, CYCLIC (1ST LINE, R-CHOP, 6 CYCLES)
     Route: 065
     Dates: start: 201809, end: 201903
  5. OXALIPLATIN [Suspect]
     Active Substance: OXALIPLATIN
     Indication: Diffuse large B-cell lymphoma
     Dosage: UNK, CYCLIC (R-GEMOX, 1 CYCLES, STANDARD DOSAGE)
     Route: 065
     Dates: start: 201908
  6. GEMCITABINE [Suspect]
     Active Substance: GEMCITABINE
     Indication: Diffuse large B-cell lymphoma
     Dosage: UNK, CYCLIC (R-GEMOX, 1 CYCLES, STANDARD DOSAGE)
     Route: 065
     Dates: start: 201908
  7. DOXORUBICIN HYDROCHLORIDE [Suspect]
     Active Substance: DOXORUBICIN HYDROCHLORIDE
     Indication: Diffuse large B-cell lymphoma
  8. PREDNISONE [Suspect]
     Active Substance: PREDNISONE
     Indication: Diffuse large B-cell lymphoma
  9. VINCRISTINE SULFATE [Suspect]
     Active Substance: VINCRISTINE SULFATE
     Indication: Diffuse large B-cell lymphoma

REACTIONS (1)
  - Gastrointestinal haemorrhage [Unknown]
